FAERS Safety Report 20205122 (Version 1)
Quarter: 2021Q4

REPORT INFORMATION
  Report Type: Spontaneous
  Country: US (occurrence: None)
  Receive Date: 20211220
  Receipt Date: 20211220
  Transmission Date: 20220303
  Serious: No
  Sender: FDA-Public Use
  Company Number: US-MDD US Operations-SUP202107-001424

PATIENT
  Age: 53 Year
  Sex: Male

DRUGS (1)
  1. OXTELLAR XR [Suspect]
     Active Substance: OXCARBAZEPINE
     Indication: Partial seizures
     Dosage: NOT PROVIDED
     Route: 048
     Dates: start: 201902

REACTIONS (1)
  - Insomnia [Unknown]
